FAERS Safety Report 6299269-0 (Version None)
Quarter: 2009Q3

REPORT INFORMATION
  Report Type: 
  Country: None (occurrence: None)
  Receive Date: 20090806
  Receipt Date: 20090805
  Transmission Date: 20100115
  Serious: Yes (Death)
  Sender: FDA-Public Use
  Company Number: US-ROXANE LABORATORIES, INC.-2009-RO-00781RO

PATIENT
  Sex: Male
  Weight: 116 kg

DRUGS (11)
  1. METHADONE [Suspect]
     Indication: DRUG DEPENDENCE
     Dosage: 140 MG
     Route: 048
  2. ULORIC [Suspect]
     Indication: GOUT
     Dosage: 80 MG
     Route: 048
     Dates: start: 20090320
  3. TRAMADOL HCL [Suspect]
     Indication: PAIN
     Route: 048
  4. VICODIN [Concomitant]
     Indication: PAIN
     Route: 048
  5. LEVOTHYROXINE SODIUM [Concomitant]
     Indication: HYPOTHYROIDISM
     Dosage: 300 MCG
     Route: 048
  6. PIROXICAM [Concomitant]
     Indication: GOUT
     Dosage: 20 MG
     Route: 048
  7. JANUMET [Concomitant]
     Indication: DIABETES MELLITUS
     Route: 048
  8. SYMBICORT [Concomitant]
     Indication: LUNG DISORDER
     Dosage: 4 PUF
     Route: 055
  9. TOPROL-XL [Concomitant]
     Indication: HYPERTENSION
     Dosage: 200 MG
     Route: 048
  10. CADUET [Concomitant]
     Indication: HYPERLIPIDAEMIA
     Route: 048
  11. LISINOPRIL/HYDROCHLORITHIAZIDE [Concomitant]
     Indication: HYPERTENSION
     Route: 048

REACTIONS (4)
  - CONGESTIVE CARDIOMYOPATHY [None]
  - DRUG TOXICITY [None]
  - PULMONARY OEDEMA [None]
  - THYROID FIBROSIS [None]
